FAERS Safety Report 5288117-3 (Version None)
Quarter: 2007Q2

REPORT INFORMATION
  Report Type: 
  Country: None (occurrence: None)
  Receive Date: 20070405
  Receipt Date: 20070330
  Transmission Date: 20071010
  Serious: Yes (Other)
  Sender: FDA-Public Use
  Company Number: 2006UW10854

PATIENT
  Age: 44 Year
  Sex: Male
  Weight: 102.3 kg

DRUGS (12)
  1. SEROQUEL [Suspect]
     Indication: PSYCHOTIC DISORDER
     Route: 048
  2. DEPAKOTE [Concomitant]
     Indication: BIPOLAR DISORDER
  3. MOOD ELEVATORS [Concomitant]
     Indication: DEPRESSION
  4. HEART MEDICINE [Concomitant]
     Indication: BLOOD TRIGLYCERIDES INCREASED
  5. CLONOPIN [Concomitant]
     Indication: EXTRAPYRAMIDAL DISORDER
  6. ABILIFY [Concomitant]
  7. GEODON [Concomitant]
     Dates: start: 19990101
  8. HALDOL [Concomitant]
     Dates: start: 19890101, end: 19960101
  9. RISPERDAL [Concomitant]
     Dates: start: 19990101
  10. TRILAFON [Concomitant]
  11. ZYPREXA [Concomitant]
  12. HOME MANUFACTURED AMPHETAMINES [Concomitant]

REACTIONS (2)
  - HYPERGLYCAEMIA [None]
  - TARDIVE DYSKINESIA [None]
